FAERS Safety Report 20429454 (Version 1)
Quarter: 2022Q1

REPORT INFORMATION
  Report Type: Report from Study
  Country: US (occurrence: US)
  Receive Date: 20220204
  Receipt Date: 20220204
  Transmission Date: 20220424
  Serious: Yes (Other)
  Sender: FDA-Public Use
  Company Number: US-GILEAD-2022-0567900

PATIENT
  Age: 2 Year
  Sex: Male

DRUGS (1)
  1. AZTREONAM LYSINE [Suspect]
     Active Substance: AZTREONAM LYSINE
     Indication: Product used for unknown indication
     Dosage: UNK
     Route: 065

REACTIONS (5)
  - Bacterial tracheitis [Not Recovered/Not Resolved]
  - Tracheostomy [Not Recovered/Not Resolved]
  - Gastrostomy [Not Recovered/Not Resolved]
  - Illiteracy [Not Recovered/Not Resolved]
  - Off label use [Not Recovered/Not Resolved]
